FAERS Safety Report 11832820 (Version 1)
Quarter: 2015Q4

REPORT INFORMATION
  Report Type: Spontaneous
  Country: US (occurrence: US)
  Receive Date: 20151214
  Receipt Date: 20151214
  Transmission Date: 20160305
  Serious: No
  Sender: FDA-Public Use
  Company Number: US-GLAXOSMITHKLINE-US2015GSK156772

PATIENT
  Age: 56 Year
  Sex: Female

DRUGS (1)
  1. TANZEUM [Suspect]
     Active Substance: ALBIGLUTIDE
     Indication: PRODUCT USED FOR UNKNOWN INDICATION
     Dosage: 30 MG, WE

REACTIONS (3)
  - Injection site erythema [Unknown]
  - Injection site pruritus [Not Recovered/Not Resolved]
  - Injection site rash [Not Recovered/Not Resolved]
